FAERS Safety Report 7648888-5 (Version None)
Quarter: 2011Q3

REPORT INFORMATION
  Report Type: 
  Country: None (occurrence: None)
  Receive Date: 20110801
  Receipt Date: 20110722
  Transmission Date: 20111222
  Serious: Yes (Other)
  Sender: FDA-Public Use
  Company Number: US-AMGEN-USASP2011029964

PATIENT
  Age: 58 Year
  Sex: Female

DRUGS (1)
  1. ENBREL [Suspect]
     Indication: RHEUMATOID ARTHRITIS
     Dosage: 50 MG, QWK
     Dates: start: 20110527

REACTIONS (13)
  - BALANCE DISORDER [None]
  - INCREASED TENDENCY TO BRUISE [None]
  - FATIGUE [None]
  - INJECTION SITE HAEMATOMA [None]
  - ANXIETY [None]
  - CONTUSION [None]
  - VOMITING [None]
  - TRISMUS [None]
  - INJECTION SITE PAIN [None]
  - SPEECH DISORDER [None]
  - TREMOR [None]
  - MUSCULAR WEAKNESS [None]
  - INJECTION SITE HAEMORRHAGE [None]
